FAERS Safety Report 4502424-0 (Version None)
Quarter: 2004Q4

REPORT INFORMATION
  Report Type: 
  Country: None (occurrence: None)
  Receive Date: 20041116
  Receipt Date: 20041013
  Transmission Date: 20050328
  Serious: Yes (Other)
  Sender: FDA-Public Use
  Company Number: PHBS2004JP13685

PATIENT
  Sex: 0

DRUGS (3)
  1. TEGRETOL [Suspect]
     Indication: MENTAL DISABILITY
     Dosage: 600 MG/DAY
     Route: 048
     Dates: end: 20040927
  2. TEGRETOL [Suspect]
     Dosage: 1200 MG/DAY
     Route: 048
     Dates: start: 20040928
  3. XYLOCAINE [Suspect]
     Route: 065

REACTIONS (2)
  - DIZZINESS [None]
  - SURGERY [None]
